FAERS Safety Report 8687164 (Version 2)
Quarter: 2012Q4

REPORT INFORMATION
  Report Type: 
  Country: US (occurrence: US)
  Receive Date: 20120727
  Receipt Date: 20121003
  Transmission Date: 20130627
  Serious: No
  Sender: FDA-Public Use
  Company Number: US-PFIZER INC-2012179452

PATIENT
  Age: 67 Year
  Sex: Female
  Weight: 78.91 kg

DRUGS (8)
  1. LIPITOR [Suspect]
     Indication: BLOOD CHOLESTEROL INCREASED
     Dosage: 40 mg, daily
     Route: 048
     Dates: end: 201202
  2. FLEXERIL [Suspect]
     Indication: ARTHRALGIA
     Dosage: 10 mg, daily
  3. FLEXERIL [Suspect]
     Indication: PAIN IN EXTREMITY
  4. FLEXERIL [Suspect]
     Indication: BACK PAIN
  5. NORVASC [Concomitant]
     Indication: HYPERTENSION
     Dosage: 10 mg, daily
  6. BENICAR HCT [Concomitant]
     Indication: HYPERTENSION
     Dosage: [olmesartan medoxomil 20 mg]/ [hydrochlorothiazide 12.5 mg], daily
  7. POTASSIUM CHLORIDE [Concomitant]
     Indication: BLOOD POTASSIUM DECREASED
     Dosage: 10 mEq, daily
  8. METFORMIN [Concomitant]
     Indication: GLUCOSE TOLERANCE IMPAIRED
     Dosage: 500 mg, 2x/day

REACTIONS (9)
  - Dysstasia [Unknown]
  - Intervertebral disc degeneration [Not Recovered/Not Resolved]
  - Arthralgia [Not Recovered/Not Resolved]
  - Pain in extremity [Not Recovered/Not Resolved]
  - Back pain [Not Recovered/Not Resolved]
  - Paraesthesia [Recovered/Resolved]
  - Insomnia [Unknown]
  - Somnolence [Unknown]
  - Muscle spasms [Recovered/Resolved]
